FAERS Safety Report 23232145 (Version 1)
Quarter: 2023Q4

REPORT INFORMATION
  Report Type: Spontaneous
  Country: CN (occurrence: CN)
  Receive Date: 20231127
  Receipt Date: 20231127
  Transmission Date: 20240110
  Serious: Yes (Other)
  Sender: FDA-Public Use
  Company Number: CN-BAYER-2023A164666

PATIENT
  Age: 92 Year
  Sex: Male
  Weight: 70 kg

DRUGS (10)
  1. NUBEQA [Suspect]
     Active Substance: DAROLUTAMIDE
     Indication: Prostate cancer
     Dosage: 600 MG, BID
     Route: 048
     Dates: start: 20231013, end: 20231019
  2. NUBEQA [Suspect]
     Active Substance: DAROLUTAMIDE
     Indication: Hormone therapy
     Dosage: 300 MG, BID
     Route: 048
     Dates: start: 20231020
  3. ZOLEDRONIC ACID [Suspect]
     Active Substance: ZOLEDRONIC ACID
     Indication: Prostate cancer
     Dosage: 4 MG, ONCE, DISSOLVED BY 100ML NORMAL SALINE
     Route: 041
     Dates: start: 20231016, end: 20231016
  4. ZOLEDRONIC ACID [Suspect]
     Active Substance: ZOLEDRONIC ACID
     Indication: Metastases to bone
  5. ZOLEDRONIC ACID [Suspect]
     Active Substance: ZOLEDRONIC ACID
     Indication: Skeletal injury
  6. CELECOXIB [Suspect]
     Active Substance: CELECOXIB
     Indication: Prostate cancer
     Dosage: 200 MG, BID
     Route: 048
     Dates: start: 20231018, end: 20231019
  7. CELECOXIB [Suspect]
     Active Substance: CELECOXIB
     Indication: Analgesic therapy
  8. MORPHINE SULFATE [Suspect]
     Active Substance: MORPHINE SULFATE
     Indication: Prostate cancer
     Dosage: 10 MG, BID
     Route: 048
     Dates: start: 20231014, end: 20231017
  9. MORPHINE SULFATE [Suspect]
     Active Substance: MORPHINE SULFATE
     Indication: Analgesic therapy
  10. SODIUM CHLORIDE [Concomitant]
     Active Substance: SODIUM CHLORIDE
     Indication: Prostate cancer
     Dosage: 100 ML, ONCE
     Route: 041
     Dates: start: 20231016, end: 20231016

REACTIONS (3)
  - Acute kidney injury [Recovering/Resolving]
  - Renal impairment [Recovering/Resolving]
  - Delirium [None]

NARRATIVE: CASE EVENT DATE: 20231017
